FAERS Safety Report 4650630-7 (Version None)
Quarter: 2005Q2

REPORT INFORMATION
  Report Type: 
  Country: None (occurrence: None)
  Receive Date: 20050429
  Receipt Date: 20050429
  Transmission Date: 20051028
  Serious: No
  Sender: FDA-Public Use
  Company Number: None

PATIENT
  Age: 65 Year
  Sex: Male
  Weight: 79.5 kg

DRUGS (3)
  1. VFEND [Suspect]
     Indication: ASPERGILLOSIS
     Dosage: 480MG IV Q 12 X 2 DOSES THEN 300MG Q 12
     Route: 042
     Dates: start: 20050107, end: 20050110
  2. CIPRO [Suspect]
     Dosage: 400 MG IV Q 12 H
     Route: 042
     Dates: start: 20050104, end: 20050109
  3. CEFEPIME [Concomitant]

REACTIONS (2)
  - HALLUCINATION, VISUAL [None]
  - INFUSION RELATED REACTION [None]
